FAERS Safety Report 4538343-3 (Version None)
Quarter: 2004Q4

REPORT INFORMATION
  Report Type: 
  Country: None (occurrence: None)
  Receive Date: 20041217
  Receipt Date: 20041208
  Transmission Date: 20050328
  Serious: Yes (Hospitalization)
  Sender: FDA-Public Use
  Company Number: WAES 0412USA01023

PATIENT
  Age: 44 Year
  Sex: Male

DRUGS (4)
  1. VIOXX [Suspect]
     Dosage: 25 MG/DAILY/PO
     Route: 048
     Dates: start: 20010901, end: 20041007
  2. BEXTRA [Concomitant]
  3. MAGNESIUM [Concomitant]
  4. MULTIVITAMIN [Concomitant]

REACTIONS (12)
  - BLOOD PRESSURE INCREASED [None]
  - CHEST PAIN [None]
  - DIZZINESS EXERTIONAL [None]
  - ELECTROCARDIOGRAM ABNORMAL [None]
  - ELECTROCARDIOGRAM ST SEGMENT DEPRESSION [None]
  - FIBROMYALGIA [None]
  - HEART RATE INCREASED [None]
  - HEART RATE IRREGULAR [None]
  - HYPERHIDROSIS [None]
  - NAUSEA [None]
  - PALPITATIONS [None]
  - VISUAL DISTURBANCE [None]
